FAERS Safety Report 5820994-7 (Version None)
Quarter: 2008Q3

REPORT INFORMATION
  Report Type: 
  Country: None (occurrence: None)
  Receive Date: 20080724
  Receipt Date: 20080716
  Transmission Date: 20090109
  Serious: Yes (Hospitalization, Other)
  Sender: FDA-Public Use
  Company Number: GB-NOVOPROD-270286

PATIENT
  Sex: Female
  Weight: 65 kg

DRUGS (8)
  1. INSULIN DETEMIR FLEXPEN [Suspect]
     Indication: INSULIN-REQUIRING TYPE 2 DIABETES MELLITUS
     Dosage: 16 IU, QD
     Route: 058
     Dates: start: 20070721
  2. NOVORAPID FLEXPEN [Suspect]
     Indication: INSULIN-REQUIRING TYPE 2 DIABETES MELLITUS
     Dosage: 30 IU, QD
     Route: 058
     Dates: start: 20070109
  3. METFORMIN [Concomitant]
     Dosage: 3 G, QD
     Route: 048
     Dates: start: 19941201
  4. ATORVASTATIN CALCIUM [Concomitant]
     Dosage: 40 MG, QD
     Route: 048
     Dates: start: 19991101
  5. ASPIRIN [Concomitant]
     Dosage: 75 MG, QD
     Route: 048
     Dates: start: 19940101
  6. LAMOTRIGINE [Concomitant]
     Dosage: 200 MG, QD
     Route: 048
     Dates: start: 19991101
  7. LISINOPRIL [Concomitant]
     Dosage: 5 MG, QD
     Route: 048
     Dates: start: 19940101
  8. CO DYDRAMOL [Concomitant]
     Dosage: UNK, UNK
     Route: 048
     Dates: start: 20050201

REACTIONS (2)
  - HYPOGLYCAEMIA [None]
  - PANCREATIC MASS [None]
